FAERS Safety Report 16755781 (Version 10)
Quarter: 2020Q3

REPORT INFORMATION
  Report Type: Spontaneous
  Country: IL (occurrence: IL)
  Receive Date: 20190829
  Receipt Date: 20200819
  Transmission Date: 20201102
  Serious: Yes (Hospitalization)
  Sender: FDA-Public Use
  Company Number: IL-ACTELION-A-CH2019-194867

PATIENT
  Age: 40 Year
  Sex: Female

DRUGS (18)
  1. UPTRAVI [Suspect]
     Active Substance: SELEXIPAG
     Indication: PULMONARY ARTERIAL HYPERTENSION
     Dosage: 600 MCG, BID
     Route: 048
     Dates: start: 20190821, end: 20190825
  2. DIGOXIN. [Concomitant]
     Active Substance: DIGOXIN
  3. UPTRAVI [Suspect]
     Active Substance: SELEXIPAG
     Dosage: 400 MCG, BID
     Route: 048
     Dates: start: 202008
  4. UPTRAVI [Suspect]
     Active Substance: SELEXIPAG
     Dosage: 200 MCG, QD
     Route: 048
     Dates: start: 201909
  5. UPTRAVI [Suspect]
     Active Substance: SELEXIPAG
     Dosage: 400 MCG, BID
     Route: 048
  6. SILDENAFIL CITRATE. [Concomitant]
     Active Substance: SILDENAFIL CITRATE
  7. UPTRAVI [Suspect]
     Active Substance: SELEXIPAG
     Dosage: 800MCG PM/ 600MCG AM
     Route: 048
     Dates: start: 20200801
  8. ALDACTONE [Concomitant]
     Active Substance: SPIRONOLACTONE
  9. UPTRAVI [Suspect]
     Active Substance: SELEXIPAG
     Dosage: 600MCG PM 400 MCG AM
     Route: 048
     Dates: start: 20190814
  10. UPTRAVI [Suspect]
     Active Substance: SELEXIPAG
     Dosage: 400 MCG, BID
     Route: 048
     Dates: end: 20191018
  11. UPTRAVI [Suspect]
     Active Substance: SELEXIPAG
     Dosage: 400 MCG, BID
     Route: 048
     Dates: start: 20200707
  12. OPSUMIT [Suspect]
     Active Substance: MACITENTAN
     Indication: PULMONARY ARTERIAL HYPERTENSION
     Dosage: 10 MG, OD
     Route: 048
     Dates: start: 20190717
  13. TYVASO [Suspect]
     Active Substance: TREPROSTINIL
     Indication: PULMONARY ARTERIAL HYPERTENSION
     Dosage: UNK
     Route: 055
     Dates: start: 20200203, end: 20200601
  14. COUMADIN [Concomitant]
     Active Substance: WARFARIN SODIUM
  15. FUSID [Concomitant]
  16. UPTRAVI [Suspect]
     Active Substance: SELEXIPAG
     Dosage: 200 MCG, BID
     Route: 048
     Dates: start: 20190717
  17. NORVASC [Concomitant]
     Active Substance: AMLODIPINE BESYLATE
  18. UPTRAVI [Suspect]
     Active Substance: SELEXIPAG
     Dosage: 400 MCG, BID
     Route: 048
     Dates: start: 20200719

REACTIONS (16)
  - Weight increased [Not Recovered/Not Resolved]
  - Nausea [Recovered/Resolved]
  - Concomitant disease aggravated [Not Recovered/Not Resolved]
  - Fluid retention [Not Recovered/Not Resolved]
  - Pulmonary arterial hypertension [Unknown]
  - Intra-abdominal fluid collection [Not Recovered/Not Resolved]
  - Therapy non-responder [Unknown]
  - Oedema peripheral [Not Recovered/Not Resolved]
  - Right ventricular failure [Not Recovered/Not Resolved]
  - Dyspnoea [Not Recovered/Not Resolved]
  - Condition aggravated [Unknown]
  - Abdominal pain [Recovering/Resolving]
  - Headache [Not Recovered/Not Resolved]
  - Myalgia [Not Recovered/Not Resolved]
  - Asthenia [Not Recovered/Not Resolved]
  - Dyspnoea exertional [Not Recovered/Not Resolved]

NARRATIVE: CASE EVENT DATE: 20190822
